FAERS Safety Report 6475318-1 (Version None)
Quarter: 2009Q4

REPORT INFORMATION
  Report Type: 
  Country: None (occurrence: None)
  Receive Date: 20091204
  Receipt Date: 20090408
  Transmission Date: 20100525
  Serious: Yes (Other)
  Sender: FDA-Public Use
  Company Number: KR-ELI_LILLY_AND_COMPANY-KR200904001885

PATIENT
  Age: 56 Year
  Sex: Male

DRUGS (3)
  1. TADALAFIL [Suspect]
     Indication: ERECTILE DYSFUNCTION
     Dosage: 5 MG, DAILY (1/D)
     Route: 048
  2. TADALAFIL [Suspect]
     Dosage: 5 MG, DAILY (1/D)
     Route: 048
     Dates: end: 20090101
  3. TAMSULOSIN [Concomitant]
     Indication: BENIGN PROSTATIC HYPERPLASIA
     Dosage: UNK, UNKNOWN
     Route: 065

REACTIONS (9)
  - DRUG INEFFECTIVE [None]
  - DYSPEPSIA [None]
  - FACIAL PALSY [None]
  - HEADACHE [None]
  - HOT FLUSH [None]
  - INTRAOCULAR PRESSURE INCREASED [None]
  - MUSCULOSKELETAL STIFFNESS [None]
  - VISUAL IMPAIRMENT [None]
  - VOMITING [None]
